FAERS Safety Report 5263236-6 (Version None)
Quarter: 2007Q1

REPORT INFORMATION
  Report Type: 
  Country: None (occurrence: None)
  Receive Date: 20061219
  Receipt Date: 20060829
  Transmission Date: 20070707
  Serious: No
  Sender: FDA-Public Use
  Company Number: 2006US001987

PATIENT
  Age: 54 Year
  Sex: Female

DRUGS (18)
  1. VESICARE [Suspect]
     Dosage: SEE IMAGE
     Route: 048
     Dates: start: 20050701, end: 20060601
  2. VESICARE [Suspect]
     Dosage: SEE IMAGE
     Route: 048
     Dates: start: 20060601
  3. FLUTICASONE PROPIONATE [Concomitant]
  4. ASPIRIN [Concomitant]
  5. TENORMIN [Concomitant]
  6. PROTONIX [Concomitant]
  7. GLUCOPHAGE [Concomitant]
  8. DIOVAN [Concomitant]
  9. LASIX [Concomitant]
  10. ALDACTONE (POTASSIUM CANRENOATE) [Concomitant]
  11. TRICOR [Concomitant]
  12. SYNTHROID [Concomitant]
  13. CLARITIN [Concomitant]
  14. ESTRACE [Concomitant]
  15. ENTEX LA (GUAIFENESIN) [Concomitant]
  16. MOTRIN [Concomitant]
  17. NYSTATIN [Concomitant]
  18. POTASSIUM (POTASSIUM CHLORIDE) [Concomitant]

REACTIONS (3)
  - ABDOMINAL PAIN [None]
  - BREAST PAIN [None]
  - VISION BLURRED [None]
